FAERS Safety Report 24294255 (Version 1)
Quarter: 2024Q3

REPORT INFORMATION
  Report Type: Spontaneous
  Country: US (occurrence: US)
  Receive Date: 20240906
  Receipt Date: 20240906
  Transmission Date: 20241017
  Serious: No
  Sender: DOMPE FARMACEUTICI
  Company Number: US-FARMAPROD-202406-2301

PATIENT
  Sex: Male

DRUGS (7)
  1. OXERVATE [Suspect]
     Active Substance: CENEGERMIN-BKBJ
     Indication: Neurotrophic keratopathy
     Route: 047
     Dates: start: 20240605
  2. OXERVATE [Suspect]
     Active Substance: CENEGERMIN-BKBJ
  3. VALTREX [Concomitant]
     Active Substance: VALACYCLOVIR HYDROCHLORIDE
  4. DORZOLAMIDE\TIMOLOL [Concomitant]
     Active Substance: DORZOLAMIDE\TIMOLOL
  5. OPTASE [Concomitant]
  6. SERUM TEARS [Concomitant]
  7. OCUSOFT LID SCRUB KIT [Concomitant]

REACTIONS (3)
  - Vision blurred [Unknown]
  - Nasopharyngitis [Unknown]
  - Cough [Unknown]
